FAERS Safety Report 23757646 (Version 1)
Quarter: 2024Q2

REPORT INFORMATION
  Report Type: Spontaneous
  Country: US (occurrence: None)
  Receive Date: 20240418
  Receipt Date: 20240418
  Transmission Date: 20240716
  Serious: No
  Sender: FDA-Public Use
  Company Number: None

PATIENT
  Age: 83 Year
  Sex: Female
  Weight: 48.99 kg

DRUGS (8)
  1. DOXYCYCLINE HYCLATE [Suspect]
     Active Substance: DOXYCYCLINE HYCLATE
     Indication: Wrist surgery
     Dosage: OTHER QUANTITY : 2 PILLS;?FREQUENCY : TWICE A DAY;?
     Route: 048
     Dates: start: 20240315, end: 20240331
  2. DOXYCYCLINE HYCLATE [Suspect]
     Active Substance: DOXYCYCLINE HYCLATE
     Indication: Post procedural infection
  3. SIMVASTATIN [Concomitant]
     Active Substance: SIMVASTATIN
  4. LOSARTAN POTASSIUM [Concomitant]
     Active Substance: LOSARTAN POTASSIUM
  5. CALCIUM CITRATE [Concomitant]
     Active Substance: CALCIUM CITRATE
  6. VITAMIN D3 [Concomitant]
     Active Substance: CHOLECALCIFEROL
  7. TYLENOL [Concomitant]
     Active Substance: ACETAMINOPHEN
  8. CALCIUM CITRATE D3 [Concomitant]

REACTIONS (7)
  - Rash [None]
  - Rash [None]
  - Rash [None]
  - Erythema [None]
  - Erythema [None]
  - Erythema [None]
  - Insomnia [None]

NARRATIVE: CASE EVENT DATE: 20240318
